FAERS Safety Report 18254703 (Version 5)
Quarter: 2020Q4

REPORT INFORMATION
  Report Type: Spontaneous
  Country: US (occurrence: US)
  Receive Date: 20200910
  Receipt Date: 20201117
  Transmission Date: 20210113
  Serious: Yes (Other)
  Sender: FDA-Public Use
  Company Number: US-GILEAD-2020-0494461

PATIENT
  Age: 38 Year
  Sex: Male

DRUGS (12)
  1. HCG [Concomitant]
     Active Substance: GONADOTROPHIN, CHORIONIC
     Dosage: INJECTION
  2. CIALIS [Concomitant]
     Active Substance: TADALAFIL
  3. ANASTRAZOLE [Concomitant]
     Active Substance: ANASTROZOLE
  4. FINASTERIDE. [Concomitant]
     Active Substance: FINASTERIDE
  5. BIOTIN [Concomitant]
     Active Substance: BIOTIN
  6. DESCOVY [Suspect]
     Active Substance: EMTRICITABINE\TENOFOVIR ALAFENAMIDE FUMARATE
     Indication: PROPHYLAXIS AGAINST HIV INFECTION
     Dosage: UNK
     Route: 065
  7. ST JOHN^S WORT [Suspect]
     Active Substance: ST. JOHN^S WORT
     Dosage: 300MG EXTRACT (0.3% HYPERICIN) 200 MG POWDER; 1-3 DAILY
     Route: 065
  8. TESTOSTERONE CYPIONATE. [Concomitant]
     Active Substance: TESTOSTERONE CYPIONATE
     Dosage: INJECTION
  9. FAMOTIDINE. [Concomitant]
     Active Substance: FAMOTIDINE
  10. GLUCOSAMINE [Concomitant]
     Active Substance: GLUCOSAMINE
  11. CETIRIZINE [Concomitant]
     Active Substance: CETIRIZINE HYDROCHLORIDE
  12. TESTOSTERONE. [Concomitant]
     Active Substance: TESTOSTERONE
     Dosage: INJECTION

REACTIONS (2)
  - Treatment failure [Not Recovered/Not Resolved]
  - HIV test positive [Not Recovered/Not Resolved]

NARRATIVE: CASE EVENT DATE: 20200828
